FAERS Safety Report 17974321 (Version 1)
Quarter: 2020Q3

REPORT INFORMATION
  Report Type: Spontaneous
  Country: FR (occurrence: FR)
  Receive Date: 20200702
  Receipt Date: 20200702
  Transmission Date: 20201103
  Serious: Yes (Hospitalization, Other)
  Sender: FDA-Public Use
  Company Number: FR-PFIZER INC-2020253031

PATIENT
  Age: 54 Year
  Sex: Female

DRUGS (6)
  1. ALPRAZOLAM. [Suspect]
     Active Substance: ALPRAZOLAM
     Dosage: 15 MG, SINGLE
     Route: 048
     Dates: start: 20200613, end: 20200613
  2. LAMALINE (ACETAMINOPHEN\CAFFEINE\OPIUM) [Suspect]
     Active Substance: ACETAMINOPHEN\CAFFEINE\OPIUM
     Dosage: 18 DF, SINGLE
     Route: 048
     Dates: start: 20200613, end: 20200613
  3. TRAMADOL HYDROCHLORIDE. [Suspect]
     Active Substance: TRAMADOL HYDROCHLORIDE
     Dosage: 525 MG, SINGLE
     Route: 048
     Dates: start: 20200613, end: 20200613
  4. LORMETAZEPAM [Suspect]
     Active Substance: LORMETAZEPAM
     Dosage: 28 MG, SINGLE
     Route: 048
     Dates: start: 20200613, end: 20200613
  5. VENLAFAXINE HCL [Suspect]
     Active Substance: VENLAFAXINE HYDROCHLORIDE
     Dosage: 1275 MG, SINGLE
     Route: 048
     Dates: start: 20200613, end: 20200613
  6. DICLOFENAC [Suspect]
     Active Substance: DICLOFENAC
     Dosage: 1125 MG, SINGLE
     Route: 048
     Dates: start: 20200613, end: 20200613

REACTIONS (2)
  - Poisoning deliberate [Unknown]
  - Somnolence [Recovered/Resolved]

NARRATIVE: CASE EVENT DATE: 20200613
